FAERS Safety Report 13455827 (Version 1)
Quarter: 2017Q2

REPORT INFORMATION
  Report Type: Spontaneous
  Country: CA (occurrence: CA)
  Receive Date: 20170419
  Receipt Date: 20170419
  Transmission Date: 20170830
  Serious: Yes (Hospitalization)
  Sender: FDA-Public Use
  Company Number: CA-GLAXOSMITHKLINE-CA2017GSK053539

PATIENT
  Age: 63 Year
  Sex: Male

DRUGS (2)
  1. VENTOLIN [Suspect]
     Active Substance: ALBUTEROL SULFATE
  2. ADVAIR HFA [Suspect]
     Active Substance: FLUTICASONE PROPIONATE\SALMETEROL XINAFOATE

REACTIONS (7)
  - Dyspnoea [Unknown]
  - Viral upper respiratory tract infection [Unknown]
  - Wheezing [Unknown]
  - Blood cholesterol increased [Unknown]
  - Cough [Unknown]
  - Asthma [Unknown]
  - Hypertension [Unknown]

NARRATIVE: CASE EVENT DATE: 201701
